FAERS Safety Report 10067886 (Version 1)
Quarter: 2014Q2

REPORT INFORMATION
  Report Type: Spontaneous
  Country: US (occurrence: None)
  Receive Date: 20140407
  Receipt Date: 20140407
  Transmission Date: 20141212
  Serious: Yes (Other)
  Sender: FDA-Public Use
  Company Number: 2014AP002554

PATIENT
  Sex: Female

DRUGS (1)
  1. PAROXETINE [Suspect]
     Indication: DEPRESSION

REACTIONS (9)
  - Cerebrovascular accident [None]
  - Weight increased [None]
  - Fluid retention [None]
  - Lip swelling [None]
  - Somnolence [None]
  - Drug ineffective [None]
  - Drug withdrawal syndrome [None]
  - Oedema mouth [None]
  - Crying [None]
